FAERS Safety Report 7294876-0 (Version None)
Quarter: 2011Q1

REPORT INFORMATION
  Report Type: 
  Country: None (occurrence: None)
  Receive Date: 20110216
  Receipt Date: 20110202
  Transmission Date: 20110831
  Serious: Yes (Hospitalization, Other)
  Sender: FDA-Public Use
  Company Number: US-BAYER-200937499NA

PATIENT
  Sex: Female

DRUGS (5)
  1. UNCODEABLE ^UNCLASSIFIABLE^ [Concomitant]
     Dosage: UNK
     Dates: start: 20060921
  2. YASMIN [Suspect]
     Indication: PREMENSTRUAL SYNDROME
     Route: 048
  3. UNCODEABLE ^UNCLASSIFIABLE^ [Concomitant]
     Dosage: UNK
     Dates: start: 20070410
  4. YASMIN [Suspect]
     Indication: ACNE
  5. UNCODEABLE ^UNCLASSIFIABLE^ [Concomitant]
     Dosage: UNK
     Dates: start: 20061215

REACTIONS (4)
  - DEEP VEIN THROMBOSIS [None]
  - HIGH RISK PREGNANCY [None]
  - PULMONARY EMBOLISM [None]
  - THROMBOSIS [None]
